FAERS Safety Report 11678315 (Version 1)
Quarter: 2015Q4

REPORT INFORMATION
  Report Type: Spontaneous
  Country: US (occurrence: US)
  Receive Date: 20151027
  Receipt Date: 20151027
  Transmission Date: 20160304
  Serious: No
  Sender: FDA-Public Use
  Company Number: US-ELI_LILLY_AND_COMPANY-US201008007845

PATIENT
  Sex: Female

DRUGS (2)
  1. FORTEO [Suspect]
     Active Substance: TERIPARATIDE
     Indication: OSTEOPOROSIS
     Dosage: 20 UG, DAILY (1/D)
     Dates: start: 200911, end: 20101024
  2. FORTEO [Suspect]
     Active Substance: TERIPARATIDE
     Dosage: 20 UG, DAILY (1/D)

REACTIONS (12)
  - Memory impairment [Unknown]
  - Pain [Unknown]
  - Insomnia [Unknown]
  - Movement disorder [Unknown]
  - Musculoskeletal pain [Not Recovered/Not Resolved]
  - Fear [Unknown]
  - Head discomfort [Not Recovered/Not Resolved]
  - Musculoskeletal stiffness [Unknown]
  - Panic attack [Unknown]
  - Back pain [Unknown]
  - Pain in extremity [Unknown]
  - Feeling abnormal [Unknown]
